FAERS Safety Report 4917627-0 (Version None)
Quarter: 2006Q1

REPORT INFORMATION
  Report Type: 
  Country: None (occurrence: None)
  Receive Date: 20060215
  Receipt Date: 20060207
  Transmission Date: 20060701
  Serious: Yes (Hospitalization, Other)
  Sender: FDA-Public Use
  Company Number: 2006019308

PATIENT
  Age: 51 Year
  Sex: Male
  Weight: 63.5036 kg

DRUGS (1)
  1. DEPO-MEDROL [Suspect]
     Dosage: (ONCE), EPIDURAL
     Route: 008

REACTIONS (6)
  - DISORIENTATION [None]
  - FEELING ABNORMAL [None]
  - FORMICATION [None]
  - HYPOAESTHESIA [None]
  - PAIN [None]
  - PARAESTHESIA [None]
